FAERS Safety Report 16938022 (Version 1)
Quarter: 2019Q4

REPORT INFORMATION
  Report Type: Spontaneous
  Country: CA (occurrence: CA)
  Receive Date: 20191019
  Receipt Date: 20191019
  Transmission Date: 20200122
  Serious: Yes (Death)
  Sender: FDA-Public Use
  Company Number: CA-ACCORD-158042

PATIENT
  Age: 73 Year
  Sex: Female

DRUGS (7)
  1. BISOPROLOL [Concomitant]
     Active Substance: BISOPROLOL
  2. QUETIAPINE. [Suspect]
     Active Substance: QUETIAPINE
     Indication: PRODUCT USED FOR UNKNOWN INDICATION
     Route: 048
  3. DIAZEPAM. [Concomitant]
     Active Substance: DIAZEPAM
  4. TEMAZEPAM. [Concomitant]
     Active Substance: TEMAZEPAM
  5. HYDROMORPHONE/HYDROMORPHONE HYDROCHLORIDE [Concomitant]
  6. OXAZEPAM. [Concomitant]
     Active Substance: OXAZEPAM
  7. AMIODARONE [Interacting]
     Active Substance: AMIODARONE
     Indication: PRODUCT USED FOR UNKNOWN INDICATION
     Route: 048

REACTIONS (3)
  - Potentiating drug interaction [Fatal]
  - Cardiotoxicity [Fatal]
  - Cardioactive drug level above therapeutic [Fatal]
